FAERS Safety Report 6115996-X (Version None)
Quarter: 2009Q1

REPORT INFORMATION
  Report Type: 
  Country: None (occurrence: None)
  Receive Date: 20090314
  Receipt Date: 20090109
  Transmission Date: 20090719
  Serious: No
  Sender: FDA-Public Use
  Company Number: US-ABBOTT-08P-163-0480538-00

PATIENT
  Sex: Female
  Weight: 66.738 kg

DRUGS (2)
  1. HUMIRA [Suspect]
     Indication: RHEUMATOID ARTHRITIS
     Route: 058
     Dates: start: 20050101
  2. HUMIRA [Suspect]

REACTIONS (8)
  - ARTHRALGIA [None]
  - DROOLING [None]
  - DYSARTHRIA [None]
  - FALL [None]
  - HYPOAESTHESIA [None]
  - MALAISE [None]
  - SKIN ULCER [None]
  - SPEECH DISORDER [None]
